FAERS Safety Report 23336010 (Version 1)
Quarter: 2023Q4

REPORT INFORMATION
  Report Type: Spontaneous
  Country: US (occurrence: US)
  Receive Date: 20231225
  Receipt Date: 20231225
  Transmission Date: 20240110
  Serious: Yes (Hospitalization)
  Sender: FDA-Public Use
  Company Number: US-SA-SAC20231221001769

PATIENT
  Age: 14 Year
  Sex: Female
  Weight: 106.5 kg

DRUGS (4)
  1. DUPIXENT [Suspect]
     Active Substance: DUPILUMAB
     Indication: Dermatitis atopic
     Dosage: UNK
     Route: 058
  2. DUPIXENT [Suspect]
     Active Substance: DUPILUMAB
     Dosage: 300 MG, QOW
     Route: 058
     Dates: start: 20231212
  3. TRAZODONE HCL [Concomitant]
     Active Substance: TRAZODONE HYDROCHLORIDE
     Dosage: UNK
  4. MELATONIN [Concomitant]
     Active Substance: MELATONIN
     Dosage: UNK

REACTIONS (8)
  - Mental disorder [Unknown]
  - Eczema [Unknown]
  - Skin haemorrhage [Unknown]
  - Pruritus [Unknown]
  - Sleep disorder [Unknown]
  - Skin exfoliation [Unknown]
  - Dry skin [Unknown]
  - Skin weeping [Unknown]

NARRATIVE: CASE EVENT DATE: 20230101
